FAERS Safety Report 20158914 (Version 1)
Quarter: 2021Q4

REPORT INFORMATION
  Report Type: Spontaneous
  Country: PT (occurrence: PT)
  Receive Date: 20211208
  Receipt Date: 20211208
  Transmission Date: 20220304
  Serious: Yes (Hospitalization, Other)
  Sender: FDA-Public Use
  Company Number: PT-MACLEODS PHARMACEUTICALS US LTD-MAC2021033594

PATIENT

DRUGS (1)
  1. LIDOCAINE [Suspect]
     Active Substance: LIDOCAINE
     Indication: Local anaesthesia
     Dosage: 30 MILLILITER (STRENGTH: 2%), SUBCUTANEOUSLY IN THE FRONTOTEMPORAL REGION FOR PIN INSERTION
     Route: 058

REACTIONS (5)
  - Local anaesthetic systemic toxicity [Recovered/Resolved]
  - Supraventricular tachycardia [Recovered/Resolved]
  - Agitation [Recovered/Resolved]
  - Dysgeusia [Recovered/Resolved]
  - Vision blurred [Recovered/Resolved]
